FAERS Safety Report 10358094 (Version 1)
Quarter: 2014Q3

REPORT INFORMATION
  Report Type: Spontaneous
  Country: US (occurrence: US)
  Receive Date: 20140801
  Receipt Date: 20140801
  Transmission Date: 20150326
  Serious: No
  Sender: FDA-Public Use
  Company Number: US-ASTRAZENECA-2014SE54812

PATIENT
  Age: 62 Year
  Sex: Female
  Weight: 83.9 kg

DRUGS (6)
  1. AVALIDE [Suspect]
     Active Substance: HYDROCHLOROTHIAZIDE\IRBESARTAN
     Dosage: EVERY DAY
     Route: 065
  2. BABY ASPIRIN [Suspect]
     Active Substance: ASPIRIN
     Dosage: EVERY DAY
     Route: 065
  3. CRESTOR [Suspect]
     Active Substance: ROSUVASTATIN CALCIUM
     Dosage: EVERY DAY
     Route: 048
  4. ONGLYZA [Suspect]
     Active Substance: SAXAGLIPTIN HYDROCHLORIDE
     Indication: TYPE 2 DIABETES MELLITUS
     Dosage: EVERY DAY
     Route: 048
  5. ACEBUTOLOL [Suspect]
     Active Substance: ACEBUTOLOL
     Dosage: TWO TIMES A DAY
     Route: 065
  6. TARKA [Suspect]
     Active Substance: TRANDOLAPRIL\VERAPAMIL HYDROCHLORIDE
     Dosage: EVERY DAY
     Route: 065

REACTIONS (2)
  - Hypertension [Unknown]
  - Blood test abnormal [Unknown]
